FAERS Safety Report 20660190 (Version 1)
Quarter: 2022Q1

REPORT INFORMATION
  Report Type: Spontaneous
  Country: US (occurrence: US)
  Receive Date: 20220331
  Receipt Date: 20220331
  Transmission Date: 20220424
  Serious: Yes (Other)
  Sender: FDA-Public Use
  Company Number: US-GILEAD-2022-0575551

PATIENT
  Age: 70 Year
  Sex: Male
  Weight: 78.8 kg

DRUGS (1)
  1. YESCARTA [Suspect]
     Active Substance: AXICABTAGENE CILOLEUCEL
     Indication: Diffuse large B-cell lymphoma
     Dosage: UNK
     Route: 042
     Dates: start: 20211229, end: 20211229

REACTIONS (10)
  - Immune effector cell-associated neurotoxicity syndrome [Unknown]
  - Acute kidney injury [Unknown]
  - Cytokine release syndrome [Unknown]
  - Fatigue [Unknown]
  - Tremor [Unknown]
  - Hypoalbuminaemia [Unknown]
  - Oliguria [Unknown]
  - Pleural effusion [Unknown]
  - Somnolence [Unknown]
  - Incontinence [Unknown]

NARRATIVE: CASE EVENT DATE: 20211230
